FAERS Safety Report 14726017 (Version 1)
Quarter: 2018Q2

REPORT INFORMATION
  Report Type: Report from Study
  Country: SG (occurrence: SG)
  Receive Date: 20180406
  Receipt Date: 20180406
  Transmission Date: 20180711
  Serious: Yes (Death)
  Sender: FDA-Public Use
  Company Number: SG-BEH-2018089554

PATIENT
  Age: 2 Month
  Sex: Male

DRUGS (1)
  1. HUMAN IMMUNOGLOBULIN IV BMW (GENERIC) [Suspect]
     Active Substance: HUMAN IMMUNOGLOBULIN G
     Indication: KAWASAKI^S DISEASE
     Route: 042

REACTIONS (1)
  - Drug effect incomplete [Fatal]
